FAERS Safety Report 8992800 (Version 1)
Quarter: 2013Q1

REPORT INFORMATION
  Report Type: Spontaneous
  Country: US (occurrence: US)
  Receive Date: 20130102
  Receipt Date: 20130102
  Transmission Date: 20140127
  Serious: No
  Sender: FDA-Public Use
  Company Number: US-009507513-1212USA010597

PATIENT
  Age: 70 Year
  Sex: Female

DRUGS (4)
  1. REMERON [Suspect]
     Indication: SCHIZOPHRENIA
     Dosage: 30 TO 45 MG
     Route: 048
     Dates: start: 20121205, end: 20121212
  2. REMERON [Suspect]
     Dosage: 15 MG, UNK
     Route: 048
     Dates: start: 20121213
  3. RISPERDAL [Concomitant]
  4. ATIVAN [Concomitant]

REACTIONS (1)
  - Renal impairment [Unknown]
